FAERS Safety Report 6305710-7 (Version None)
Quarter: 2009Q3

REPORT INFORMATION
  Report Type: 
  Country: None (occurrence: None)
  Receive Date: 20090812
  Receipt Date: 20070530
  Transmission Date: 20100115
  Serious: Yes (Other)
  Sender: FDA-Public Use
  Company Number: US-ASTRAZENECA-2006UW12046

PATIENT
  Age: 31 Year
  Sex: Female
  Weight: 59.4 kg

DRUGS (19)
  1. SEROQUEL [Suspect]
     Indication: BIPOLAR DISORDER
     Route: 048
     Dates: start: 20040421
  2. SEROQUEL [Suspect]
     Indication: SLEEP DISORDER
     Route: 048
     Dates: start: 20040421
  3. SEROQUEL [Suspect]
     Indication: AFFECTIVE DISORDER
     Route: 048
     Dates: start: 20040421
  4. SEROQUEL [Suspect]
     Route: 048
     Dates: start: 20041201, end: 20050101
  5. SEROQUEL [Suspect]
     Route: 048
     Dates: start: 20041201, end: 20050101
  6. SEROQUEL [Suspect]
     Route: 048
     Dates: start: 20041201, end: 20050101
  7. ABILIFY [Concomitant]
  8. CLOZARIL [Concomitant]
  9. HALDOL [Concomitant]
  10. STELAZINE [Concomitant]
  11. THORAZINE [Concomitant]
  12. ZYPREXA [Concomitant]
     Dates: start: 20040101
  13. LITHIUM CARBONATE [Concomitant]
  14. LEXAPRO [Concomitant]
     Dosage: 10-20 MG, DAILY
     Route: 048
     Dates: start: 20040211
  15. LAMICTAL [Concomitant]
     Dosage: 50-200 MG
     Route: 048
     Dates: start: 20040318
  16. VISTARIL [Concomitant]
     Route: 048
     Dates: start: 20040211
  17. METFORMIN [Concomitant]
     Indication: INSULIN RESISTANCE
     Dates: start: 20060101
  18. TRILEPTAL [Concomitant]
     Route: 048
     Dates: start: 20041209
  19. TRAZODONE HCL [Concomitant]
     Route: 048
     Dates: start: 20040211

REACTIONS (3)
  - DIABETES MELLITUS [None]
  - HYPERSENSITIVITY [None]
  - INSULIN RESISTANCE [None]
